FAERS Safety Report 6571903-7 (Version None)
Quarter: 2010Q1

REPORT INFORMATION
  Report Type: 
  Country: None (occurrence: None)
  Receive Date: 20100205
  Receipt Date: 20100123
  Transmission Date: 20100710
  Serious: Yes (Hospitalization)
  Sender: FDA-Public Use
  Company Number: US-BAYER-200942892NA

PATIENT
  Age: 40 Year
  Sex: Female
  Weight: 117 kg

DRUGS (26)
  1. CAMPATH [Suspect]
     Indication: MULTIPLE SCLEROSIS
     Dosage: TOTAL DAILY DOSE: 12 MG
     Route: 042
     Dates: start: 20080818, end: 20080822
  2. CAMPATH [Suspect]
     Dosage: TOTAL DAILY DOSE: 12 MG
     Route: 042
     Dates: start: 20090817, end: 20090819
  3. METHYLPREDNISOLONE [Concomitant]
     Dates: start: 20080818, end: 20080820
  4. METHYLPREDNISOLONE [Concomitant]
     Dates: start: 20090817, end: 20090819
  5. LUNESTA [Concomitant]
     Dates: start: 20080101
  6. IBUPROFEN [Concomitant]
     Dates: start: 20091030
  7. TRILEPTAL [Concomitant]
     Dates: start: 20080101
  8. WELLBUTRIN XL [Concomitant]
     Dates: start: 20070701
  9. VITAMIN B6 [Concomitant]
     Dates: start: 20080727
  10. MULTIPLE VITAMINS [Concomitant]
     Dates: start: 20081001
  11. LEXAPRO [Concomitant]
     Dates: start: 20090409
  12. VITAMIN C [Concomitant]
     Dates: start: 20090603
  13. PEPCID [Concomitant]
     Dates: start: 20090816
  14. TYLENOL-500 [Concomitant]
     Dates: start: 20090817
  15. NAPRELAN [Concomitant]
     Dates: start: 20090817
  16. AMBIEN CR [Concomitant]
     Dates: start: 20090817
  17. ACYCLOVIR [Concomitant]
     Dates: start: 20090417, end: 20090915
  18. TUSSICAPS [Concomitant]
     Dates: start: 20091012
  19. ADVIL [Concomitant]
     Dates: start: 20091009
  20. LEVOTHYROXINE SODIUM [Concomitant]
     Dates: start: 20091101
  21. NORCO [Concomitant]
     Dates: start: 20091030
  22. DILAUDID [Concomitant]
     Dates: start: 20091101
  23. LIDODERM [Concomitant]
     Dates: start: 20091101
  24. PREDNISONE [Concomitant]
     Dates: start: 20091101
  25. FAMVIR [Concomitant]
     Dates: start: 20091101
  26. BIAXIN [Concomitant]

REACTIONS (7)
  - CULTURE URINE POSITIVE [None]
  - DEHYDRATION [None]
  - HAEMOGLOBIN DECREASED [None]
  - HYPOKALAEMIA [None]
  - LEGIONELLA TEST [None]
  - PNEUMONIA [None]
  - SINUSITIS [None]
